FAERS Safety Report 6683143-1 (Version None)
Quarter: 2010Q2

REPORT INFORMATION
  Report Type: 
  Country: None (occurrence: None)
  Receive Date: 20100413
  Receipt Date: 20100331
  Transmission Date: 20101027
  Serious: Yes (Death)
  Sender: FDA-Public Use
  Company Number: A-CH2010-35327

PATIENT
  Age: 26 Year
  Sex: Female
  Weight: 45 kg

DRUGS (4)
  1. TRACLEER [Suspect]
     Indication: PULMONARY ARTERIAL HYPERTENSION
     Dosage: 62.5 MG, BID, ORAL
     Route: 048
     Dates: start: 20100127
  2. LEVOTHYROXINE SODIUM [Concomitant]
  3. DIGOXIN [Concomitant]
  4. ASPIRIN [Concomitant]

REACTIONS (6)
  - ENURESIS [None]
  - FEEDING DISORDER [None]
  - MENTAL DISORDER [None]
  - NERVOUSNESS [None]
  - PULMONARY EMBOLISM [None]
  - SOCIAL AVOIDANT BEHAVIOUR [None]
